FAERS Safety Report 9495944 (Version 3)
Quarter: 2013Q4

REPORT INFORMATION
  Report Type: Spontaneous
  Country: DE (occurrence: DE)
  Receive Date: 20130904
  Receipt Date: 20131119
  Transmission Date: 20140711
  Serious: Yes (Other)
  Sender: FDA-Public Use
  Company Number: DE-ROCHE-1269874

PATIENT
  Sex: Female
  Weight: 74 kg

DRUGS (3)
  1. AVASTIN [Suspect]
     Indication: BRONCHIAL CARCINOMA
     Route: 042
     Dates: start: 20130405, end: 20130823
  2. CISPLATIN [Suspect]
     Indication: BRONCHIAL CARCINOMA
     Route: 065
  3. VERGENTAN [Concomitant]
     Indication: VOMITING
     Route: 048
     Dates: start: 20130405, end: 20130823

REACTIONS (1)
  - Blindness [Recovering/Resolving]
